FAERS Safety Report 9274581 (Version 1)
Quarter: 2013Q2

REPORT INFORMATION
  Report Type: Spontaneous
  Country: US (occurrence: US)
  Receive Date: 20130507
  Receipt Date: 20130507
  Transmission Date: 20140414
  Serious: No
  Sender: FDA-Public Use
  Company Number: US-B.I. PHARMACEUTICALS,INC./RIDGEFIELD-2013-BI-12232BP

PATIENT
  Age: 65 Year
  Sex: Female
  Weight: 54 kg

DRUGS (3)
  1. PRADAXA [Suspect]
     Indication: CEREBROVASCULAR ACCIDENT PROPHYLAXIS
     Dosage: 300 MG
     Route: 048
     Dates: start: 201107
  2. DOCUSATE SODIUM [Concomitant]
     Indication: DIARRHOEA
     Dosage: 300 MG
     Route: 048
     Dates: start: 201209
  3. COUMADIN [Concomitant]
     Indication: ANTICOAGULANT THERAPY
     Route: 048
     Dates: start: 201107, end: 201109

REACTIONS (1)
  - Constipation [Not Recovered/Not Resolved]
